FAERS Safety Report 9776389 (Version 1)
Quarter: 2013Q4

REPORT INFORMATION
  Report Type: Spontaneous
  Country: US (occurrence: US)
  Receive Date: 20131220
  Receipt Date: 20131220
  Transmission Date: 20140711
  Serious: Yes (Life-Threatening)
  Sender: FDA-Public Use
  Company Number: US-ABBVIE-13P-163-1181996-00

PATIENT
  Sex: Female

DRUGS (1)
  1. SYNTHROID [Suspect]
     Indication: PRODUCT USED FOR UNKNOWN INDICATION

REACTIONS (9)
  - Unevaluable event [Unknown]
  - Malaise [Unknown]
  - Suspected counterfeit product [Unknown]
  - Unevaluable event [Unknown]
  - Physical disability [Unknown]
  - Body temperature decreased [Unknown]
  - Feeling cold [Unknown]
  - Unevaluable event [Unknown]
  - Feeling abnormal [Unknown]
